FAERS Safety Report 15280592 (Version 1)
Quarter: 2018Q3

REPORT INFORMATION
  Report Type: Spontaneous
  Country: US (occurrence: US)
  Receive Date: 20180731
  Receipt Date: 20180731
  Transmission Date: 20181010
  Serious: No
  Sender: FDA-Public Use
  Company Number: None

PATIENT
  Age: 39 Year
  Sex: Female

DRUGS (1)
  1. OTREXUP [Suspect]
     Active Substance: METHOTREXATE
     Dates: start: 20100101, end: 20180731

REACTIONS (3)
  - Nausea [None]
  - Abdominal discomfort [None]
  - Hot flush [None]

NARRATIVE: CASE EVENT DATE: 20180101
